FAERS Safety Report 14603605 (Version 3)
Quarter: 2018Q2

REPORT INFORMATION
  Report Type: Report from Study
  Country: US (occurrence: US)
  Receive Date: 20180306
  Receipt Date: 20180527
  Transmission Date: 20180711
  Serious: Yes (Hospitalization, Other)
  Sender: FDA-Public Use
  Company Number: US-MYLANLABS-2018M1015234

PATIENT
  Age: 56 Year
  Sex: Female
  Weight: 58 kg

DRUGS (9)
  1. LEVEMIR [Concomitant]
     Active Substance: INSULIN DETEMIR
     Indication: PRODUCT USED FOR UNKNOWN INDICATION
     Dosage: 40 DF, AM
     Dates: start: 20180301
  2. CLOZAPINE. [Suspect]
     Active Substance: CLOZAPINE
     Dosage: 1 1/2 TABLET, BID
     Dates: start: 20180426
  3. PROTONIX                           /00661201/ [Concomitant]
     Active Substance: OMEPRAZOLE
     Indication: PRODUCT USED FOR UNKNOWN INDICATION
     Dosage: 40 MG, Q2H
     Dates: start: 20180228, end: 20180301
  4. CLOZAPINE. [Suspect]
     Active Substance: CLOZAPINE
     Indication: PRODUCT USED FOR UNKNOWN INDICATION
     Dosage: UNK
     Dates: start: 2001
  5. CLOZAPINE. [Suspect]
     Active Substance: CLOZAPINE
     Dosage: UNK
     Dates: start: 20180227
  6. CLOZAPINE. [Suspect]
     Active Substance: CLOZAPINE
     Dosage: 2 DF, BID
     Dates: start: 20180228, end: 20180301
  7. IRON DEXTRAN [Concomitant]
     Active Substance: IRON DEXTRAN
     Indication: PRODUCT USED FOR UNKNOWN INDICATION
     Dosage: 1600 MG, UNK
     Route: 042
     Dates: start: 20180228
  8. NOVOLOG SSI [Concomitant]
     Dosage: UNK
  9. NOVOLOG SSI [Concomitant]
     Indication: PRODUCT USED FOR UNKNOWN INDICATION
     Dosage: UNK
     Dates: start: 20180228, end: 20180301

REACTIONS (12)
  - Weight decreased [Unknown]
  - Red blood cell count decreased [Unknown]
  - Glycosylated haemoglobin increased [Unknown]
  - White blood cell count increased [Not Recovered/Not Resolved]
  - Platelet count increased [Recovering/Resolving]
  - Anaemia [Recovering/Resolving]
  - Blood glucose increased [Recovering/Resolving]
  - Mean cell haemoglobin decreased [Unknown]
  - Blood alkaline phosphatase increased [Unknown]
  - Mean cell haemoglobin concentration decreased [Unknown]
  - Red cell distribution width increased [Unknown]
  - Diabetic ketoacidosis [Unknown]

NARRATIVE: CASE EVENT DATE: 2018
